FAERS Safety Report 6355075-X (Version None)
Quarter: 2009Q3

REPORT INFORMATION
  Report Type: 
  Country: None (occurrence: None)
  Receive Date: 20090909
  Receipt Date: 20090825
  Transmission Date: 20100115
  Serious: Yes (Hospitalization, Other)
  Sender: FDA-Public Use
  Company Number: 2009001951

PATIENT
  Age: 50 Year
  Sex: Female

DRUGS (1)
  1. TARCEVA [Suspect]
     Indication: NON-SMALL CELL LUNG CANCER
     Dosage: (150 MG,QD),ORAL
     Route: 048
     Dates: start: 20090210, end: 20090315

REACTIONS (7)
  - CORNEAL DISORDER [None]
  - CORNEAL EROSION [None]
  - CORNEAL OPACITY [None]
  - ECZEMA HERPETICUM [None]
  - RASH VESICULAR [None]
  - SKIN LESION [None]
  - STEVENS-JOHNSON SYNDROME [None]
